FAERS Safety Report 20637099 (Version 5)
Quarter: 2022Q2

REPORT INFORMATION
  Report Type: Report from Study
  Country: US (occurrence: US)
  Receive Date: 20220325
  Receipt Date: 20220609
  Transmission Date: 20220721
  Serious: No
  Sender: FDA-Public Use
  Company Number: US-NOVARTISTESTPH-NVSC2022US068544

PATIENT
  Sex: Male

DRUGS (1)
  1. ENTRESTO [Suspect]
     Active Substance: SACUBITRIL\VALSARTAN
     Indication: Product used for unknown indication
     Dosage: UNK UNK, BID
     Route: 048

REACTIONS (6)
  - COVID-19 [Unknown]
  - Fatigue [Unknown]
  - Chest pain [Unknown]
  - Oxygen saturation decreased [Recovering/Resolving]
  - Memory impairment [Unknown]
  - Peripheral vascular disorder [Unknown]
